FAERS Safety Report 6085017-6 (Version None)
Quarter: 2009Q1

REPORT INFORMATION
  Report Type: 
  Country: None (occurrence: None)
  Receive Date: 20090220
  Receipt Date: 20090217
  Transmission Date: 20090719
  Serious: Yes (Other)
  Sender: FDA-Public Use
  Company Number: US-BAYER-200913470NA

PATIENT
  Age: 34 Year
  Sex: Female

DRUGS (1)
  1. OCELLA [Suspect]
     Indication: DRUG USE FOR UNKNOWN INDICATION
     Route: 048
     Dates: start: 20081101

REACTIONS (3)
  - DEEP VEIN THROMBOSIS [None]
  - FEELING ABNORMAL [None]
  - PAIN IN EXTREMITY [None]
